FAERS Safety Report 5631409-6 (Version None)
Quarter: 2008Q1

REPORT INFORMATION
  Report Type: 
  Country: None (occurrence: None)
  Receive Date: 20080212
  Receipt Date: 20080204
  Transmission Date: 20080703
  Serious: Yes (Hospitalization)
  Sender: FDA-Public Use
  Company Number: 2007SP014480

PATIENT
  Age: 50 Year
  Sex: Female

DRUGS (2)
  1. PEG-INTERON (PEGINTERFERON ALFA-2B) [Suspect]
     Indication: HEPATITIS C
     Dates: start: 20070412
  2. RIBAVIRIN [Suspect]
     Indication: HEPATITIS C
     Dosage: PO
     Route: 048
     Dates: start: 20070412

REACTIONS (18)
  - ALOPECIA [None]
  - ANAEMIA [None]
  - ARTHRITIS [None]
  - ASTHENIA [None]
  - BREAST CANCER [None]
  - DRUG INEFFECTIVE [None]
  - DRY SKIN [None]
  - DYSKINESIA [None]
  - DYSSTASIA [None]
  - EMOTIONAL DISORDER [None]
  - FATIGUE [None]
  - IMPAIRED HEALING [None]
  - INCISION SITE ERYTHEMA [None]
  - PAIN OF SKIN [None]
  - POST PROCEDURAL COMPLICATION [None]
  - PRURITUS [None]
  - SCAB [None]
  - SOMNOLENCE [None]
